FAERS Safety Report 13269671 (Version 3)
Quarter: 2017Q2

REPORT INFORMATION
  Report Type: Spontaneous
  Country: DE (occurrence: DE)
  Receive Date: 20170224
  Receipt Date: 20170411
  Transmission Date: 20170830
  Serious: Yes (Other)
  Sender: FDA-Public Use
  Company Number: DE-009507513-1702DEU010399

PATIENT
  Age: 87 Year
  Sex: Female

DRUGS (9)
  1. SIMVASTATIN. [Suspect]
     Active Substance: SIMVASTATIN
     Dosage: 40 MG, QPM (0-0-1)
     Route: 048
  2. CHOLECALCIFEROL [Concomitant]
     Active Substance: CHOLECALCIFEROL
     Dosage: 1000 IU, QAM (1-0-0)
  3. BISOPROLOL [Concomitant]
     Active Substance: BISOPROLOL
     Dosage: 2.5 MG, QAM (1-0-0)
  4. TORSEMIDE. [Concomitant]
     Active Substance: TORSEMIDE
     Dosage: 5 MG, QD (1-0-0)
  5. ASPIRIN. [Concomitant]
     Active Substance: ASPIRIN
     Dosage: 100 MG, QAM (1-0-0)
  6. QUININE [Interacting]
     Active Substance: QUININE
     Indication: MUSCLE SPASMS
     Dosage: 200 MG, QD
  7. SIMVASTATIN. [Interacting]
     Active Substance: SIMVASTATIN
     Dosage: 200 MG, QD
     Route: 048
  8. RAMIPRIL. [Concomitant]
     Active Substance: RAMIPRIL
     Dosage: 5 MG, QAM (1-0-0)
  9. FENTANYL. [Concomitant]
     Active Substance: FENTANYL
     Dosage: 12.5 MICROGRAM, Q3D
     Route: 062

REACTIONS (5)
  - Myopathy [Recovered/Resolved]
  - Myopathy [Recovered/Resolved]
  - Renal impairment [Recovering/Resolving]
  - Toxicity to various agents [Recovered/Resolved]
  - Drug interaction [Recovered/Resolved]

NARRATIVE: CASE EVENT DATE: 2011
